FAERS Safety Report 10403340 (Version 2)
Quarter: 2014Q3

REPORT INFORMATION
  Report Type: Spontaneous
  Country: ES (occurrence: ES)
  Receive Date: 20140822
  Receipt Date: 20140822
  Transmission Date: 20150326
  Serious: Yes (Other)
  Sender: FDA-Public Use
  Company Number: PHHY2014ES102483

PATIENT
  Age: 50 Year
  Sex: Male

DRUGS (2)
  1. INTERFERON ALFA-2A [Suspect]
     Active Substance: INTERFERON ALFA-2A
     Dates: start: 201106, end: 201206
  2. RIBAVIRIN. [Suspect]
     Active Substance: RIBAVIRIN
     Dates: start: 201106

REACTIONS (2)
  - Lichen myxoedematosus [Recovered/Resolved]
  - Skin lesion [Recovered/Resolved]
